FAERS Safety Report 26140554 (Version 1)
Quarter: 2025Q4

REPORT INFORMATION
  Report Type: Spontaneous
  Country: US (occurrence: US)
  Receive Date: 20251210
  Receipt Date: 20251210
  Transmission Date: 20260118
  Serious: No
  Sender: SANOFI AVENTIS
  Company Number: US-SA-2025SA364634

PATIENT
  Age: 15 Year
  Sex: Male

DRUGS (1)
  1. DUPIXENT [Suspect]
     Active Substance: DUPILUMAB
     Indication: Eczema
     Dosage: 200 MG, QOW
     Route: 058
     Dates: start: 20251107

REACTIONS (5)
  - Abdominal pain upper [Unknown]
  - Mood altered [Unknown]
  - Swelling face [Unknown]
  - Pain of skin [Unknown]
  - Eczema [Unknown]

NARRATIVE: CASE EVENT DATE: 20251101
